FAERS Safety Report 16970420 (Version 3)
Quarter: 2022Q2

REPORT INFORMATION
  Report Type: Report from Study
  Country: US (occurrence: US)
  Receive Date: 20191029
  Receipt Date: 20220404
  Transmission Date: 20220721
  Serious: Yes (Hospitalization)
  Sender: FDA-Public Use
  Company Number: US-PFIZER INC-2019454749

PATIENT
  Age: 13 Year
  Sex: Female
  Weight: 38.5 kg

DRUGS (7)
  1. TEMSIROLIMUS [Suspect]
     Active Substance: TEMSIROLIMUS
     Indication: Embryonal rhabdomyosarcoma
     Dosage: 15 MG/M2, (MAX DOSE 25MG) IV OVER 30-60 MINUTES ON DAYS 1, 8, AND 15. TOTAL DOSE 39.4 MG.
     Route: 042
     Dates: start: 20190822, end: 20191010
  2. CAMPTOSAR [Suspect]
     Active Substance: IRINOTECAN HYDROCHLORIDE
     Indication: Embryonal rhabdomyosarcoma
     Dosage: 50 MG/M2, IV OVER 90 MINUTES ON DAYS 1-5 OF CYCLES 2 AND 4. TOTAL DOSE 0 MG
     Route: 042
     Dates: start: 20190903, end: 20190907
  3. VINCRISTINE SULFATE [Suspect]
     Active Substance: VINCRISTINE SULFATE
     Indication: Embryonal rhabdomyosarcoma
     Dosage: 1.5 MG/M2,(MAX DOSE 2MG) IV OVER 1 MINUTE OR INFUSION VIA MINIBAG ON DAYS 1,8,AND15. TOTAL DOSE 6 MG
     Route: 042
     Dates: start: 20190815
  4. CYCLOPHOSPHAMIDE [Suspect]
     Active Substance: CYCLOPHOSPHAMIDE
     Indication: Embryonal rhabdomyosarcoma
     Dosage: 1200 MG/M2, SINGLE, IV OVER 60 MINUTES ON DAY 1 OF CYCLE 1. TOTAL DOSE 1572 MG
     Route: 042
     Dates: start: 20190815, end: 20190815
  5. CYCLOPHOSPHAMIDE [Suspect]
     Active Substance: CYCLOPHOSPHAMIDE
     Dosage: 1200 MG/M2, SINGLE, IV OVER 60 MINUTES ON DAY 1 OF CYCLE 3
     Route: 042
     Dates: start: 20190926, end: 20190926
  6. DACTINOMYCIN [Suspect]
     Active Substance: DACTINOMYCIN
     Indication: Embryonal rhabdomyosarcoma
     Dosage: 0.05 MG/KG (MAX DOSE 2.5MG), IV OVER 1-5 MINUTES ON DAY 1 OF CYCLES 1 AND 3. TOTAL DOSE 1.95 MG
     Route: 042
     Dates: start: 20190815, end: 20190815
  7. DACTINOMYCIN [Suspect]
     Active Substance: DACTINOMYCIN
     Dosage: 0.05 MG/KG, IV OVER 1-5 MINUTES ON DAY 1 OF CYCLE 3
     Route: 042
     Dates: start: 20190926, end: 20190926

REACTIONS (1)
  - Sinus tachycardia [Recovering/Resolving]

NARRATIVE: CASE EVENT DATE: 20191009
